FAERS Safety Report 9652228 (Version 1)
Quarter: 2013Q4

REPORT INFORMATION
  Report Type: Spontaneous
  Country: US (occurrence: US)
  Receive Date: 20131029
  Receipt Date: 20131029
  Transmission Date: 20140711
  Serious: No
  Sender: FDA-Public Use
  Company Number: US-BIOGENIDEC-2013BI075111

PATIENT
  Sex: Female

DRUGS (7)
  1. TECFIDERA [Suspect]
     Indication: PRODUCT USED FOR UNKNOWN INDICATION
  2. CRANBERRY [Concomitant]
  3. VITAMIN D [Concomitant]
  4. FIORINAL [Concomitant]
  5. FLUDROCORTISONE [Concomitant]
  6. MATHENAMINE MANDELATE [Concomitant]
  7. VITAMIN B12 [Concomitant]

REACTIONS (1)
  - Influenza like illness [Unknown]
